FAERS Safety Report 10160807 (Version 1)
Quarter: 2014Q2

REPORT INFORMATION
  Report Type: Spontaneous
  Country: US (occurrence: US)
  Receive Date: 20140508
  Receipt Date: 20140508
  Transmission Date: 20141212
  Serious: Yes (Death)
  Sender: FDA-Public Use
  Company Number: US-PFIZER INC-2014125192

PATIENT
  Age: 77 Year
  Sex: Male
  Weight: 83.9 kg

DRUGS (9)
  1. REVATIO [Suspect]
     Indication: PULMONARY FIBROSIS
     Dosage: 20 MG, 3X/DAY
     Route: 048
  2. REVATIO [Suspect]
     Indication: LUNG DISORDER
  3. SIMVASTATIN [Concomitant]
     Dosage: UNK
  4. ALLOPURINOL [Concomitant]
     Dosage: UNK
  5. GABAPENTIN [Concomitant]
     Dosage: UNK
  6. PLAVIX [Concomitant]
     Dosage: UNK
  7. OMEPRAZOLE [Concomitant]
  8. NOVOLOG [Concomitant]
     Dosage: UNK
  9. LANTUS [Concomitant]
     Dosage: UNK

REACTIONS (1)
  - Death [Fatal]
